FAERS Safety Report 4642877-0 (Version None)
Quarter: 2005Q2

REPORT INFORMATION
  Report Type: 
  Country: None (occurrence: None)
  Receive Date: 20050420
  Receipt Date: 20050401
  Transmission Date: 20051028
  Serious: Yes (Life-Threatening)
  Sender: FDA-Public Use
  Company Number: GBS050316850

PATIENT
  Age: 45 Year
  Sex: Female
  Weight: 52 kg

DRUGS (3)
  1. ZYPREXA [Suspect]
     Indication: SCHIZOPHRENIA
     Dosage: 20 MG DAY
     Dates: start: 20050117, end: 20050203
  2. QUETIAPINE FUMARATE [Concomitant]
  3. DIAZEPAM [Concomitant]

REACTIONS (4)
  - CARDIO-RESPIRATORY ARREST [None]
  - CHOKING [None]
  - EMOTIONAL DISORDER [None]
  - INJURY ASPHYXIATION [None]
